FAERS Safety Report 8564482-6 (Version None)
Quarter: 2012Q3

REPORT INFORMATION
  Report Type: 
  Country: None (occurrence: None)
  Receive Date: 20120803
  Receipt Date: 20120731
  Transmission Date: 20120928
  Serious: Yes (Death)
  Sender: FDA-Public Use
  Company Number: CO-PFIZER INC-2012188197

PATIENT
  Age: 79 Year
  Sex: Male

DRUGS (4)
  1. ASPIRIN [Concomitant]
     Dosage: UNK
  2. LOSARTAN [Concomitant]
     Dosage: UNK
  3. LIPITOR [Suspect]
     Indication: DYSLIPIDAEMIA
     Dosage: UNK
     Dates: start: 20040313
  4. METOPROLOL [Concomitant]
     Dosage: UNK

REACTIONS (1)
  - DEATH [None]
